FAERS Safety Report 9291190 (Version 2)
Quarter: 2015Q2

REPORT INFORMATION
  Report Type: Spontaneous
  Country: JP (occurrence: JP)
  Receive Date: 20130515
  Receipt Date: 20150420
  Transmission Date: 20150821
  Serious: Yes (Hospitalization)
  Sender: FDA-Public Use
  Company Number: PHHY2013JP047635

PATIENT
  Age: 51 Year
  Sex: Male

DRUGS (2)
  1. PAROXETINE [Suspect]
     Active Substance: PAROXETINE\PAROXETINE HYDROCHLORIDE
     Dosage: 10 MG, UNK
     Route: 065
  2. PAROXETINE [Suspect]
     Active Substance: PAROXETINE\PAROXETINE HYDROCHLORIDE
     Indication: DEPRESSION
     Dosage: 20 MG, PER DAY
     Route: 065

REACTIONS (7)
  - Purpura [Unknown]
  - Respiratory failure [Recovering/Resolving]
  - Concomitant disease aggravated [Recovering/Resolving]
  - Petechiae [Unknown]
  - Immune thrombocytopenic purpura [Recovering/Resolving]
  - Skin haemorrhage [Recovering/Resolving]
  - Pulmonary alveolar haemorrhage [Unknown]
